FAERS Safety Report 20591288 (Version 2)
Quarter: 2023Q1

REPORT INFORMATION
  Report Type: Spontaneous
  Country: DK (occurrence: DK)
  Receive Date: 20220314
  Receipt Date: 20230203
  Transmission Date: 20230418
  Serious: Yes (Life-Threatening, Hospitalization, Other)
  Sender: FDA-Public Use
  Company Number: DK-MYLANLABS-2022M1019250

PATIENT
  Age: 25 Year
  Sex: Female

DRUGS (3)
  1. ETHINYL ESTRADIOL\LEVONORGESTREL [Interacting]
     Active Substance: ETHINYL ESTRADIOL\LEVONORGESTREL
     Indication: Contraception
     Dosage: 1 DOSAGE FORM, QD
     Route: 048
     Dates: start: 20130228
  2. COMIRNATY [Interacting]
     Active Substance: TOZINAMERAN
     Indication: COVID-19 immunisation
     Dosage: 1 DOSAGE FORM, (DOSE 3)
     Route: 030
     Dates: start: 20211223, end: 20211223
  3. SERTRALINA KRKA [Concomitant]
     Indication: Sedative therapy
     Dosage: 100 MILLIGRAM, QD
     Route: 065
     Dates: start: 20210902

REACTIONS (8)
  - Superficial vein prominence [Unknown]
  - Deep vein thrombosis [Not Recovered/Not Resolved]
  - Peripheral swelling [Unknown]
  - Pain in extremity [Unknown]
  - Drug interaction [Unknown]
  - Groin pain [Unknown]
  - Contusion [Unknown]
  - Back pain [Unknown]

NARRATIVE: CASE EVENT DATE: 20220101
